FAERS Safety Report 23912405 (Version 1)
Quarter: 2024Q2

REPORT INFORMATION
  Report Type: Spontaneous
  Country: SE (occurrence: SE)
  Receive Date: 20240528
  Receipt Date: 20240528
  Transmission Date: 20240716
  Serious: Yes (Life-Threatening, Other)
  Sender: FDA-Public Use
  Company Number: None

PATIENT
  Age: 73 Year
  Sex: Female
  Weight: 58 kg

DRUGS (12)
  1. TECARTUS [Suspect]
     Active Substance: BREXUCABTAGENE AUTOLEUCEL
     Indication: Mantle cell lymphoma
     Dosage: 68 MILLILITER DOS: F?RSTA DOS
     Route: 042
     Dates: start: 20240327, end: 20240327
  2. ACYCLOVIR [Concomitant]
     Active Substance: ACYCLOVIR
     Dosage: 1 TABLETT 2 G?NGER/DAG
     Route: 048
     Dates: start: 20240326, end: 20240401
  3. VENLAFAXINE [Concomitant]
     Active Substance: VENLAFAXINE HYDROCHLORIDE
     Dosage: 1 TABLETT DAGLIGEN
     Route: 048
     Dates: start: 20191213, end: 20240420
  4. AMITRIPTYLINE [Concomitant]
     Active Substance: AMITRIPTYLINE
     Dosage: 1 TABLETT TILL KV?LLEN
     Route: 048
     Dates: start: 20231130, end: 20240401
  5. LEVOTHYROXINE SODIUM [Concomitant]
     Active Substance: LEVOTHYROXINE SODIUM
     Dosage: 1
     Route: 048
     Dates: start: 20191002, end: 20240419
  6. LEVETIRACETAM ORION [Concomitant]
     Dosage: 1 TABLETT 2 G?NGER DAGLIGEN
     Route: 048
     Dates: start: 20240324, end: 20240401
  7. SYMBICORT [Concomitant]
     Active Substance: BUDESONIDE\FORMOTEROL FUMARATE DIHYDRATE
     Dosage: 1+1
     Route: 055
     Dates: start: 20221010, end: 20240502
  8. MONTELUKAST\MONTELUKAST SODIUM [Concomitant]
     Active Substance: MONTELUKAST\MONTELUKAST SODIUM
     Dosage: 1 TABLETT TILL NATTEN
     Route: 048
     Dates: start: 20190813, end: 20240401
  9. CALCIUM CARBONATE\CHOLECALCIFEROL [Concomitant]
     Active Substance: CALCIUM CARBONATE\CHOLECALCIFEROL
     Dosage: 1
     Route: 048
     Dates: start: 20240119, end: 20240401
  10. BACTRIM [Concomitant]
     Active Substance: SULFAMETHOXAZOLE\TRIMETHOPRIM
     Dosage: 1+1 3 DAGAR/VECKA
     Route: 048
     Dates: start: 20240326, end: 20240401
  11. OXYCONTIN [Concomitant]
     Active Substance: OXYCODONE HYDROCHLORIDE
     Dosage: 4 TABLETTER P? MORGONEN 5 TABLETTER P? KV?LLEN
     Route: 048
     Dates: start: 20221110, end: 20240401
  12. ALLOPURINOL [Concomitant]
     Active Substance: ALLOPURINOL
     Dosage: 1 TABLETT 1 G?NG/DAG
     Route: 048
     Dates: start: 20240319, end: 20240401

REACTIONS (4)
  - Quadriplegia [Not Recovered/Not Resolved]
  - Depressed level of consciousness [Not Recovered/Not Resolved]
  - Immune effector cell-associated neurotoxicity syndrome [Not Recovered/Not Resolved]
  - Cytokine release syndrome [Not Recovered/Not Resolved]

NARRATIVE: CASE EVENT DATE: 20240328
